FAERS Safety Report 15723621 (Version 5)
Quarter: 2019Q3

REPORT INFORMATION
  Report Type: Report from Study
  Country: US (occurrence: US)
  Receive Date: 20181214
  Receipt Date: 20190906
  Transmission Date: 20191004
  Serious: No
  Sender: FDA-Public Use
  Company Number: PHEH2018US051672

PATIENT
  Sex: Male

DRUGS (2)
  1. ENTRESTO [Suspect]
     Active Substance: SACUBITRIL\VALSARTAN
     Indication: CARDIAC FAILURE
     Dosage: 1 DF (24 MG SACUBITRIL AND 26 MG VALSARTAN), BID
     Route: 048
  2. ENTRESTO [Suspect]
     Active Substance: SACUBITRIL\VALSARTAN
     Indication: CARDIAC FAILURE CONGESTIVE

REACTIONS (10)
  - Sinus disorder [Unknown]
  - Ventricular extrasystoles [Unknown]
  - Back pain [Unknown]
  - Weight increased [Recovered/Resolved]
  - Hypotension [Unknown]
  - Heart rate abnormal [Unknown]
  - Dizziness [Unknown]
  - Peripheral coldness [Unknown]
  - Cough [Unknown]
  - Dry eye [Unknown]
